FAERS Safety Report 6856907-9 (Version None)
Quarter: 2010Q3

REPORT INFORMATION
  Report Type: 
  Country: None (occurrence: None)
  Receive Date: 20100719
  Receipt Date: 20100706
  Transmission Date: 20110219
  Serious: Yes (Disabling, Other)
  Sender: FDA-Public Use
  Company Number: PHHY2010IT37612

PATIENT
  Sex: Female

DRUGS (2)
  1. GLEEVEC [Suspect]
     Indication: CHRONIC MYELOID LEUKAEMIA
     Dosage: 400 MG/DAY
     Dates: start: 20020301
  2. GLEEVEC [Suspect]
     Dosage: UNK

REACTIONS (2)
  - ADENOID CYSTIC CARCINOMA [None]
  - NEOPLASM MALIGNANT [None]
